FAERS Safety Report 8313095-X (Version None)
Quarter: 2012Q2

REPORT INFORMATION
  Report Type: 
  Country: None (occurrence: None)
  Receive Date: 20120426
  Receipt Date: 20120416
  Transmission Date: 20120825
  Serious: Yes (Other)
  Sender: FDA-Public Use
  Company Number: JP-VERTEX PHARMACEUTICALS INC.-AE-2012-005682

PATIENT
  Age: 64 Year
  Sex: Male

DRUGS (6)
  1. TELAVIC (TELAPREVIR) [Suspect]
     Indication: HEPATITIS C
     Route: 048
     Dates: start: 20120214, end: 20120228
  2. RIBAVIRIN [Concomitant]
     Indication: HEPATITIS C
     Route: 048
     Dates: start: 20120214, end: 20120228
  3. PEGINTERFERON ALFA-2B [Concomitant]
     Indication: HEPATITIS C
     Route: 051
     Dates: start: 20120214, end: 20120221
  4. RIBAVIRIN [Concomitant]
     Route: 048
     Dates: start: 20120229, end: 20120326
  5. TELAVIC (TELAPREVIR) [Suspect]
     Route: 048
     Dates: start: 20120229, end: 20120326
  6. PEGINTERFERON ALFA-2B [Concomitant]
     Route: 051
     Dates: start: 20120228, end: 20120326

REACTIONS (1)
  - PANCREATITIS ACUTE [None]
